FAERS Safety Report 8962275 (Version 2)
Quarter: 2013Q1

REPORT INFORMATION
  Report Type: Spontaneous
  Country: US (occurrence: US)
  Receive Date: 20121211
  Receipt Date: 20130107
  Transmission Date: 20140127
  Serious: Yes (Other)
  Sender: FDA-Public Use
  Company Number: US-ASTELLAS-2012US011947

PATIENT
  Sex: Female
  Weight: 91 kg

DRUGS (2)
  1. VESICARE [Suspect]
     Indication: URGE INCONTINENCE
     Dosage: 5 MG, UID/QD
     Route: 048
     Dates: end: 20121030
  2. METFORMIN [Concomitant]
     Indication: PRODUCT USED FOR UNKNOWN INDICATION
     Dosage: 500 MG, UID/QD
     Route: 065

REACTIONS (2)
  - Surgery [Unknown]
  - Uterine leiomyoma [Recovered/Resolved]
